FAERS Safety Report 4291238-5 (Version None)
Quarter: 2004Q1

REPORT INFORMATION
  Report Type: 
  Country: None (occurrence: None)
  Receive Date: 20040211
  Receipt Date: 20031118
  Transmission Date: 20041129
  Serious: No
  Sender: FDA-Public Use
  Company Number: US-GLAXOSMITHKLINE-A0440215A

PATIENT
  Age: 46 Year
  Sex: Male

DRUGS (3)
  1. PAXIL [Suspect]
     Indication: DEPRESSION
     Dosage: 30MG PER DAY
     Route: 048
     Dates: start: 19970101
  2. ANTIHYPERTENSIVE [Concomitant]
  3. CHOLESTEROL REDUCING AGENT [Concomitant]

REACTIONS (3)
  - FLUID RETENTION [None]
  - SNORING [None]
  - WEIGHT INCREASED [None]
